FAERS Safety Report 24067410 (Version 1)
Quarter: 2024Q3

REPORT INFORMATION
  Report Type: Report from Study
  Country: FR (occurrence: FR)
  Receive Date: 20240709
  Receipt Date: 20240709
  Transmission Date: 20241016
  Serious: Yes (Hospitalization, Other)
  Sender: ELI LILLY AND CO
  Company Number: FR-AstraZeneca-2023A189507

PATIENT
  Age: 70 Year
  Sex: Male
  Weight: 65 kg

DRUGS (11)
  1. GEMZAR [Suspect]
     Active Substance: GEMCITABINE HYDROCHLORIDE
     Indication: Bile duct cancer
     Dosage: UNK UNK, UNKNOWN
     Route: 042
     Dates: start: 20230724, end: 20230724
  2. GEMZAR [Suspect]
     Active Substance: GEMCITABINE HYDROCHLORIDE
     Dosage: UNK UNK, UNKNOWN
     Route: 042
     Dates: start: 20230814, end: 20230814
  3. IMFINZI [Suspect]
     Active Substance: DURVALUMAB
     Indication: Bile duct cancer
     Dosage: 1500 MG, EVERY 3 WEEKS
     Route: 042
     Dates: start: 20230724
  4. IMFINZI [Suspect]
     Active Substance: DURVALUMAB
     Dosage: 1500 MG, EVERY 3 WEEKS
     Route: 042
     Dates: start: 20230911, end: 20231106
  5. IMFINZI [Suspect]
     Active Substance: DURVALUMAB
     Dosage: 1500 MG, EVERY 3 WEEKS
     Route: 042
     Dates: start: 20231211
  6. CISPLATIN [Suspect]
     Active Substance: CISPLATIN
     Indication: Bile duct cancer
     Dosage: UNK, UNKNOWN
     Route: 042
     Dates: start: 20230724, end: 20230724
  7. CISPLATIN [Suspect]
     Active Substance: CISPLATIN
     Dosage: UNK, UNKNOWN
     Route: 042
     Dates: start: 20230814, end: 20230814
  8. NEBIVOLOL [Concomitant]
     Active Substance: NEBIVOLOL
     Indication: Product used for unknown indication
     Dosage: UNK, UNKNOWN
     Route: 065
  9. ROSUVASTATIN [Concomitant]
     Active Substance: ROSUVASTATIN
     Indication: Product used for unknown indication
     Dosage: UNK UNK, UNKNOWN
     Route: 065
  10. ASPIRIN [Concomitant]
     Active Substance: ASPIRIN
     Indication: Product used for unknown indication
     Dosage: UNK, UNKNOWN
     Route: 065
  11. PANTOPRAZOLE [Concomitant]
     Active Substance: PANTOPRAZOLE
     Indication: Product used for unknown indication
     Dosage: UNK UNK, UNKNOWN
     Route: 065

REACTIONS (5)
  - Toxicity to various agents [Recovered/Resolved]
  - Deep vein thrombosis [Recovering/Resolving]
  - Thrombocytopenia [Recovered/Resolved]
  - Renal colic [Recovered/Resolved]
  - Diarrhoea [Recovered/Resolved]

NARRATIVE: CASE EVENT DATE: 20230821
